FAERS Safety Report 6045570-5 (Version None)
Quarter: 2009Q1

REPORT INFORMATION
  Report Type: 
  Country: None (occurrence: None)
  Receive Date: 20090121
  Receipt Date: 20090114
  Transmission Date: 20090719
  Serious: Yes (Disabling)
  Sender: FDA-Public Use
  Company Number: US-JNJFOC-20090103042

PATIENT
  Age: 68 Year
  Sex: Male

DRUGS (1)
  1. LEVAQUIN [Suspect]
     Indication: BACTERIAL INFECTION

REACTIONS (3)
  - MUSCLE MASS [None]
  - TENDON RUPTURE [None]
  - TENDONITIS [None]
